FAERS Safety Report 23941029 (Version 3)
Quarter: 2024Q4

REPORT INFORMATION
  Report Type: Report from Study
  Country: US (occurrence: US)
  Receive Date: 20240605
  Receipt Date: 20241007
  Transmission Date: 20250115
  Serious: No
  Sender: ALEXION PHARMACEUTICALS
  Company Number: US-AstraZeneca-CH-00636598A

PATIENT

DRUGS (4)
  1. ULTOMIRIS [Suspect]
     Active Substance: RAVULIZUMAB-CWVZ
     Indication: Myasthenia gravis
     Dosage: UNK
  2. ULTOMIRIS [Suspect]
     Active Substance: RAVULIZUMAB-CWVZ
     Dosage: UNK
  3. ULTOMIRIS [Suspect]
     Active Substance: RAVULIZUMAB-CWVZ
     Dosage: UNK
  4. ULTOMIRIS [Suspect]
     Active Substance: RAVULIZUMAB-CWVZ
     Dosage: UNK

REACTIONS (9)
  - Visual impairment [Unknown]
  - Dysphagia [Recovering/Resolving]
  - Balance disorder [Unknown]
  - Hypoacusis [Unknown]
  - Asthenia [Recovering/Resolving]
  - Diplopia [Unknown]
  - Gait disturbance [Not Recovered/Not Resolved]
  - Confusional state [Unknown]
  - Cough [Unknown]
